FAERS Safety Report 10746025 (Version 2)
Quarter: 2020Q3

REPORT INFORMATION
  Report Type: Report from Study
  Country: US (occurrence: US)
  Receive Date: 20150128
  Receipt Date: 20150224
  Transmission Date: 20201105
  Serious: Yes (Hospitalization)
  Sender: FDA-Public Use
  Company Number: US-JNJFOC-20150118253

PATIENT
  Age: 73 Year
  Sex: Female

DRUGS (12)
  1. IBRUTINIB [Suspect]
     Active Substance: IBRUTINIB
     Route: 048
  2. IBRUTINIB [Suspect]
     Active Substance: IBRUTINIB
     Indication: CHRONIC LYMPHOCYTIC LEUKAEMIA
     Route: 048
     Dates: start: 20141212, end: 20141224
  3. SIMVASTATIN. [Concomitant]
     Active Substance: SIMVASTATIN
  4. XARELTO [Concomitant]
     Active Substance: RIVAROXABAN
     Dates: end: 20141224
  5. METOPROLOL. [Concomitant]
     Active Substance: METOPROLOL
  6. ACYCLOVIR. [Concomitant]
     Active Substance: ACYCLOVIR
  7. FUROSEMIDE. [Concomitant]
     Active Substance: FUROSEMIDE
  8. METFORMIN [Concomitant]
     Active Substance: METFORMIN HYDROCHLORIDE
  9. DIGOXIN. [Concomitant]
     Active Substance: DIGOXIN
  10. ACIPHEX [Concomitant]
     Active Substance: RABEPRAZOLE SODIUM
  11. ALLOPURINOL. [Concomitant]
     Active Substance: ALLOPURINOL
  12. SYMBICORT [Concomitant]
     Active Substance: BUDESONIDE\FORMOTEROL FUMARATE DIHYDRATE

REACTIONS (10)
  - Cardiomegaly [None]
  - Pulmonary hypertension [None]
  - Pulmonary mass [None]
  - Tricuspid valve incompetence [None]
  - Pneumonia [None]
  - Pericarditis [Recovering/Resolving]
  - Pericardial effusion [None]
  - Rash erythematous [None]
  - Blood pressure systolic increased [None]
  - Escherichia urinary tract infection [None]

NARRATIVE: CASE EVENT DATE: 20141224
